FAERS Safety Report 4354869-X (Version None)
Quarter: 2004Q2

REPORT INFORMATION
  Report Type: 
  Country: None (occurrence: None)
  Receive Date: 20040507
  Receipt Date: 20040310
  Transmission Date: 20050107
  Serious: Yes (Hospitalization, Other)
  Sender: FDA-Public Use
  Company Number: PHNU2004DE01068

PATIENT
  Age: 78 Year
  Sex: Female
  Weight: 80 kg

DRUGS (9)
  1. CLOZARIL [Suspect]
     Indication: SCHIZOPHRENIA
     Dosage: 50 MG/DAY
     Route: 048
     Dates: end: 20031101
  2. CLOZARIL [Suspect]
     Dosage: 400 MG/DAY
     Route: 048
     Dates: start: 20040203
  3. CLOZARIL [Suspect]
     Dosage: 200 MG/DAY
     Route: 048
  4. CLOZARIL [Suspect]
     Dosage: TITRATION
     Route: 048
     Dates: start: 20031201, end: 20040202
  5. LAMICTAL [Suspect]
     Dosage: 100 MG/DAY
     Route: 048
     Dates: start: 20040201
  6. CIPRAMIL [Concomitant]
     Dosage: 20 MG/DAY
     Route: 048
  7. APONAL [Concomitant]
     Indication: DEPRESSION
     Dosage: 50 MG/DAY
     Route: 048
  8. LORAZEPAM [Concomitant]
     Dosage: 2 MG/DAY
     Route: 048
  9. ALPHA LIPOIC ACID [Concomitant]

REACTIONS (14)
  - ASTHENIA [None]
  - C-REACTIVE PROTEIN INCREASED [None]
  - CYANOSIS [None]
  - DRUG INTERACTION [None]
  - DRUG LEVEL INCREASED [None]
  - GENERAL PHYSICAL CONDITION ABNORMAL [None]
  - IMMOBILE [None]
  - OXYGEN SATURATION DECREASED [None]
  - PYREXIA [None]
  - RESPIRATORY FAILURE [None]
  - SOMNOLENCE [None]
  - TACHYCARDIA [None]
  - URINARY INCONTINENCE [None]
  - UROSEPSIS [None]
